FAERS Safety Report 18708752 (Version 20)
Quarter: 2025Q2

REPORT INFORMATION
  Report Type: Spontaneous
  Country: US (occurrence: US)
  Receive Date: 20210106
  Receipt Date: 20250508
  Transmission Date: 20250717
  Serious: Yes (Other)
  Sender: PFIZER
  Company Number: US-PFIZER INC-2021005393

PATIENT
  Age: 66 Year
  Sex: Female

DRUGS (2)
  1. ESTRING [Suspect]
     Active Substance: ESTRADIOL
     Dosage: ONE RING PER 90 DAYS
  2. INVOKANA [Concomitant]
     Active Substance: CANAGLIFLOZIN
     Indication: Diabetes mellitus

REACTIONS (16)
  - Deafness unilateral [Unknown]
  - Tinnitus [Unknown]
  - Tendonitis [Not Recovered/Not Resolved]
  - Hypoacusis [Unknown]
  - Nervousness [Unknown]
  - Eye infection [Unknown]
  - Lacrimation increased [Unknown]
  - Vulvovaginal dryness [Unknown]
  - Enuresis [Not Recovered/Not Resolved]
  - Disease recurrence [Not Recovered/Not Resolved]
  - Malaise [Unknown]
  - Arthritis [Unknown]
  - Spinal pain [Unknown]
  - Eye disorder [Unknown]
  - Nodule [Unknown]
  - Fatigue [Unknown]

NARRATIVE: CASE EVENT DATE: 20210101
